FAERS Safety Report 4692383-2 (Version None)
Quarter: 2005Q2

REPORT INFORMATION
  Report Type: 
  Country: None (occurrence: None)
  Receive Date: 20050615
  Receipt Date: 20050608
  Transmission Date: 20051028
  Serious: Yes (Hospitalization)
  Sender: FDA-Public Use
  Company Number: 2005-06-0358

PATIENT
  Sex: Male

DRUGS (2)
  1. TEMODAL [Suspect]
     Dosage: SEE IMAGE ORAL
     Route: 048
  2. RADIATION THERAPY [Concomitant]

REACTIONS (1)
  - NEPHROTIC SYNDROME [None]
